FAERS Safety Report 8210031-1 (Version None)
Quarter: 2012Q1

REPORT INFORMATION
  Report Type: 
  Country: None (occurrence: None)
  Receive Date: 20120314
  Receipt Date: 20110627
  Transmission Date: 20120608
  Serious: No
  Sender: FDA-Public Use
  Company Number: US-ASTRAZENECA-2005UW02166

PATIENT
  Age: 73 Year
  Sex: Female
  Weight: 80.7 kg

DRUGS (7)
  1. TOPROL-XL [Suspect]
     Indication: HYPERTENSION
     Route: 048
  2. TOPROL-XL [Suspect]
     Route: 048
  3. DYAZIDE [Concomitant]
  4. ASPIRIN [Concomitant]
  5. TOPROL-XL [Suspect]
     Route: 048
     Dates: start: 19990101
  6. ASPIRIN [Concomitant]
  7. LIPITOR [Concomitant]

REACTIONS (9)
  - JOINT SWELLING [None]
  - PNEUMONIA [None]
  - WRONG TECHNIQUE IN DRUG USAGE PROCESS [None]
  - DIZZINESS [None]
  - HEADACHE [None]
  - CHRONIC OBSTRUCTIVE PULMONARY DISEASE [None]
  - DRUG INEFFECTIVE [None]
  - NAUSEA [None]
  - INCORRECT DOSE ADMINISTERED [None]
